FAERS Safety Report 4407864-6 (Version None)
Quarter: 2004Q3

REPORT INFORMATION
  Report Type: 
  Country: None (occurrence: None)
  Receive Date: 20040726
  Receipt Date: 20040720
  Transmission Date: 20050211
  Serious: Yes (Other)
  Sender: FDA-Public Use
  Company Number: PHBS2004FR09668

PATIENT
  Age: 13 Year

DRUGS (1)
  1. PAMIDRONATE DISODIUM [Suspect]
     Indication: FIBROUS DYSPLASIA OF BONE
     Route: 042

REACTIONS (3)
  - EPIPHYSEAL DISORDER [None]
  - HYPOPHOSPHATAEMIA [None]
  - OSTEOMALACIA [None]
